FAERS Safety Report 13468148 (Version 1)
Quarter: 2017Q2

REPORT INFORMATION
  Report Type: Spontaneous
  Country: US (occurrence: US)
  Receive Date: 20170421
  Receipt Date: 20170421
  Transmission Date: 20170830
  Serious: Yes (Other)
  Sender: FDA-Public Use
  Company Number: US-NAPPMUNDI-USA-2016-0135558

PATIENT
  Sex: Male

DRUGS (1)
  1. OXYCONTIN [Suspect]
     Active Substance: OXYCODONE HYDROCHLORIDE
     Indication: PAIN
     Route: 048

REACTIONS (11)
  - Myalgia [Recovering/Resolving]
  - Hyperhidrosis [Recovering/Resolving]
  - Detoxification [Recovering/Resolving]
  - Nausea [Recovering/Resolving]
  - Depression [Unknown]
  - Drug ineffective [Unknown]
  - Vomiting [Recovering/Resolving]
  - Drug tolerance increased [Unknown]
  - Drug use disorder [Unknown]
  - Confusional state [Unknown]
  - Influenza like illness [Recovering/Resolving]
